FAERS Safety Report 8955214 (Version 1)
Quarter: 2012Q4

REPORT INFORMATION
  Report Type: 
  Country: US (occurrence: US)
  Receive Date: 20121210
  Receipt Date: 20121210
  Transmission Date: 20130627
  Serious: No
  Sender: FDA-Public Use
  Company Number: US-PFIZER INC-2012309846

PATIENT
  Age: 62 Year
  Sex: Female
  Weight: 42.63 kg

DRUGS (4)
  1. ZOLOFT [Suspect]
     Indication: DEPRESSION
     Dosage: UNK
  2. ZOLOFT [Suspect]
     Dosage: UNK
  3. CYMBALTA [Suspect]
     Indication: DEPRESSION
     Dosage: UNK
  4. PAXIL [Suspect]
     Dosage: UNK

REACTIONS (1)
  - Constipation [Unknown]
